FAERS Safety Report 24118037 (Version 1)
Quarter: 2024Q3

REPORT INFORMATION
  Report Type: Spontaneous
  Country: AU (occurrence: AU)
  Receive Date: 20240722
  Receipt Date: 20240722
  Transmission Date: 20241017
  Serious: Yes (Hospitalization)
  Sender: SANDOZ
  Company Number: AU-MYLANLABS-2024M1054959

PATIENT

DRUGS (3)
  1. QUETIAPINE FUMARATE [Suspect]
     Active Substance: QUETIAPINE FUMARATE
     Indication: Product used for unknown indication
     Dosage: 500 MG
     Route: 048
  2. TRAMADOL HYDROCHLORIDE [Suspect]
     Active Substance: TRAMADOL HYDROCHLORIDE
     Indication: Product used for unknown indication
     Dosage: 750 MG
     Route: 048
  3. ORPHENADRINE [Concomitant]
     Active Substance: ORPHENADRINE
     Indication: Intentional overdose
     Dosage: UNK
     Route: 048

REACTIONS (3)
  - Poisoning deliberate [Unknown]
  - Tachycardia [Unknown]
  - Intentional overdose [Unknown]
